FAERS Safety Report 7352254-X (Version None)
Quarter: 2011Q1

REPORT INFORMATION
  Report Type: 
  Country: None (occurrence: None)
  Receive Date: 20110315
  Receipt Date: 20110308
  Transmission Date: 20110831
  Serious: Yes (Other)
  Sender: FDA-Public Use
  Company Number: AT-AMGEN-AUTSP2011013473

PATIENT
  Age: 59 Year
  Sex: Male
  Weight: 95 kg

DRUGS (4)
  1. FOLSAN [Concomitant]
     Dosage: 5 MG, FRI, SAT, SUN
  2. ENBREL [Suspect]
     Indication: PRODUCT USED FOR UNKNOWN INDICATION
     Dosage: 50 MG, QWK
     Route: 058
     Dates: start: 20090801
  3. ENALAPRIL [Concomitant]
     Dosage: 20 MG, QD
  4. EBETREXAT                          /00113801/ [Concomitant]
     Indication: RENAL TRANSPLANT
     Dosage: 10 MG, WEEKLY

REACTIONS (1)
  - TRANSITIONAL CELL CARCINOMA [None]
